FAERS Safety Report 19602717 (Version 2)
Quarter: 2021Q3

REPORT INFORMATION
  Report Type: Spontaneous
  Country: BR (occurrence: BR)
  Receive Date: 20210723
  Receipt Date: 20210813
  Transmission Date: 20211014
  Serious: No
  Sender: FDA-Public Use
  Company Number: BR-009507513-2107BRA005533

PATIENT
  Age: 89 Year
  Sex: Female
  Weight: 75 kg

DRUGS (1)
  1. JANUMET [Suspect]
     Active Substance: METFORMIN HYDROCHLORIDE\SITAGLIPTIN PHOSPHATE
     Dosage: 50/850 MG
     Route: 048
     Dates: start: 2017, end: 2020

REACTIONS (2)
  - Weight decreased [Unknown]
  - Blood glucose decreased [Unknown]

NARRATIVE: CASE EVENT DATE: 2020
